FAERS Safety Report 22592723 (Version 5)
Quarter: 2024Q1

REPORT INFORMATION
  Report Type: Report from Study
  Country: US (occurrence: US)
  Receive Date: 20230613
  Receipt Date: 20240313
  Transmission Date: 20240410
  Serious: Yes (Other)
  Sender: FDA-Public Use
  Company Number: US-ABBVIE-5285384

PATIENT
  Age: 77 Year
  Sex: Female

DRUGS (4)
  1. SKYRIZI [Suspect]
     Active Substance: RISANKIZUMAB-RZAA
     Indication: Psoriasis
     Dosage: END DATE IN 2022
     Route: 058
     Dates: start: 20221019
  2. SKYRIZI [Suspect]
     Active Substance: RISANKIZUMAB-RZAA
     Dosage: END DATE IN 2022
     Route: 058
     Dates: start: 20220624
  3. SKYRIZI [Suspect]
     Active Substance: RISANKIZUMAB-RZAA
     Route: 058
     Dates: start: 20221104, end: 20230523
  4. SKYRIZI [Suspect]
     Active Substance: RISANKIZUMAB-RZAA
     Dosage: STOP DATE OCT 2022
     Route: 058
     Dates: start: 20221016

REACTIONS (10)
  - Breast cancer female [Not Recovered/Not Resolved]
  - COVID-19 [Unknown]
  - Dizziness [Unknown]
  - Surgery [Not Recovered/Not Resolved]
  - Corrective lens user [Unknown]
  - Herpes zoster [Unknown]
  - Intentional self-injury [Unknown]
  - Contusion [Unknown]
  - Pruritus [Unknown]
  - Erythema [Unknown]

NARRATIVE: CASE EVENT DATE: 20230401
